FAERS Safety Report 9310734 (Version 2)
Quarter: 2013Q2

REPORT INFORMATION
  Report Type: Spontaneous
  Country: US (occurrence: US)
  Receive Date: 20130528
  Receipt Date: 20130621
  Transmission Date: 20140414
  Serious: Yes (Hospitalization, Other)
  Sender: FDA-Public Use
  Company Number: US-MERCK-1305USA013953

PATIENT
  Age: 52 Year
  Sex: Female
  Weight: 100.23 kg

DRUGS (9)
  1. JANUMET XR [Suspect]
     Indication: DIABETES MELLITUS
     Dosage: 50MG/1000MG, 2 DF, QD
     Route: 048
     Dates: start: 20121126, end: 20130425
  2. FLEXERIL [Concomitant]
  3. LIPITOR [Concomitant]
     Indication: BLOOD CHOLESTEROL
     Dosage: UNK
     Route: 048
  4. PEPCID [Concomitant]
     Indication: GASTROOESOPHAGEAL REFLUX DISEASE
     Dosage: UNK
     Route: 048
  5. VICODIN [Concomitant]
  6. OMEGA-3 MARINE TRIGLYCERIDES [Concomitant]
  7. NIASPAN [Concomitant]
  8. GLYBURIDE [Concomitant]
  9. IBUPROFEN [Concomitant]
     Indication: ARTHRITIS
     Dosage: 600-800 MG
     Route: 048

REACTIONS (1)
  - Pancreatitis [Recovered/Resolved]
